FAERS Safety Report 20200539 (Version 1)
Quarter: 2021Q4

REPORT INFORMATION
  Report Type: Spontaneous
  Country: US (occurrence: US)
  Receive Date: 20211217
  Receipt Date: 20211217
  Transmission Date: 20220303
  Serious: No
  Sender: FDA-Public Use
  Company Number: US-PERRIGO-21US006410

PATIENT
  Age: 83 Year
  Sex: Female
  Weight: 64.399 kg

DRUGS (2)
  1. BACITRACIN [Suspect]
     Active Substance: BACITRACIN
     Indication: Eye infection
     Dosage: A RIBBON, SINGLE IN EACH EYE
     Route: 047
     Dates: start: 20210510, end: 20210510
  2. SYSTANE (HYPROMELLOSE 2910 (4000 MPA.S)) [Concomitant]
     Active Substance: HYPROMELLOSE 2910 (4000 MPA.S)
     Indication: Dry eye
     Dosage: UNK, PRN
     Route: 065

REACTIONS (2)
  - Ocular hyperaemia [Recovered/Resolved]
  - Dry eye [Recovered/Resolved]

NARRATIVE: CASE EVENT DATE: 20210511
